FAERS Safety Report 6287001-6 (Version None)
Quarter: 2009Q3

REPORT INFORMATION
  Report Type: 
  Country: None (occurrence: None)
  Receive Date: 20090724
  Receipt Date: 20081217
  Transmission Date: 20100115
  Serious: Yes (Other)
  Sender: FDA-Public Use
  Company Number: 2009-1304

PATIENT
  Age: 17 Month
  Sex: Female

DRUGS (6)
  1. INCRELEX [Suspect]
     Dosage: SEE IMAGE
     Route: 058
     Dates: end: 20080520
  2. INCRELEX [Suspect]
     Dosage: SEE IMAGE
     Route: 058
     Dates: start: 20080521, end: 20080803
  3. INCRELEX [Suspect]
     Dosage: SEE IMAGE
     Route: 058
     Dates: start: 20080804
  4. BACTRIM [Concomitant]
  5. METOPROLOL SUCCINATE [Concomitant]
  6. MIFEREX DROPS (POLYSACCHARIDE-IRON COMPLEX) [Concomitant]

REACTIONS (1)
  - CARDIOMYOPATHY [None]
